FAERS Safety Report 6005969-X (Version None)
Quarter: 2008Q4

REPORT INFORMATION
  Report Type: 
  Country: None (occurrence: None)
  Receive Date: 20081217
  Receipt Date: 20081209
  Transmission Date: 20090506
  Serious: Yes (Other)
  Sender: FDA-Public Use
  Company Number: PHEH2008US10334

PATIENT
  Sex: Female

DRUGS (1)
  1. RECLAST [Suspect]
     Dosage: UNK, UNK
     Dates: start: 20081105, end: 20081105

REACTIONS (3)
  - ARTHRITIS [None]
  - ENDODONTIC PROCEDURE [None]
  - PAIN IN JAW [None]
